FAERS Safety Report 7544331-5 (Version None)
Quarter: 2011Q2

REPORT INFORMATION
  Report Type: 
  Country: None (occurrence: None)
  Receive Date: 20110613
  Receipt Date: 20071214
  Transmission Date: 20111010
  Serious: Yes (Death, Hospitalization, Disabling, Other)
  Sender: FDA-Public Use
  Company Number: PHMT2006CA01528

PATIENT
  Sex: Male

DRUGS (4)
  1. ELECTROLYTES NOS [Concomitant]
  2. SANDOSTATIN LAR [Suspect]
     Indication: CARCINOID SYNDROME
     Dosage: UNK, UNK
     Dates: start: 20030401
  3. SANDOSTATIN LAR [Suspect]
     Dosage: 60 MG EVERY 3 WEEKS
     Route: 030
     Dates: start: 20070101, end: 20071017
  4. ANTIHYPERTENSIVE DRUGS [Concomitant]

REACTIONS (22)
  - WEIGHT DECREASED [None]
  - FATIGUE [None]
  - DISEASE PROGRESSION [None]
  - DRUG EFFECT DECREASED [None]
  - DIARRHOEA [None]
  - BILE DUCT OBSTRUCTION [None]
  - RETCHING [None]
  - MALAISE [None]
  - ARTHRITIS [None]
  - HORMONE LEVEL ABNORMAL [None]
  - GENERAL PHYSICAL HEALTH DETERIORATION [None]
  - BLOOD PRESSURE INCREASED [None]
  - ABDOMINAL PAIN UPPER [None]
  - HEPATIC NEOPLASM [None]
  - FLUSHING [None]
  - LOSS OF CONSCIOUSNESS [None]
  - ABDOMINAL DISCOMFORT [None]
  - CEREBROVASCULAR ACCIDENT [None]
  - FEELING ABNORMAL [None]
  - INCREASED APPETITE [None]
  - METASTASES TO STOMACH [None]
  - PAIN [None]
